FAERS Safety Report 23862202 (Version 1)
Quarter: 2024Q2

REPORT INFORMATION
  Report Type: Spontaneous
  Country: KP (occurrence: KP)
  Receive Date: 20240516
  Receipt Date: 20240516
  Transmission Date: 20240715
  Serious: Yes (Other)
  Sender: FDA-Public Use
  Company Number: KP-SUN PHARMACEUTICAL INDUSTRIES LTD-2024RR-446604

PATIENT
  Age: 22 Year
  Sex: Male

DRUGS (6)
  1. ESCITALOPRAM [Suspect]
     Active Substance: ESCITALOPRAM OXALATE
     Indication: Panic disorder
     Dosage: 20 MILLIGRAM, DAILY
     Route: 065
  2. ARIPIPRAZOLE [Suspect]
     Active Substance: ARIPIPRAZOLE
     Indication: Panic disorder
     Dosage: 5 MILLIGRAM, DAILY
     Route: 065
  3. ARIPIPRAZOLE [Suspect]
     Active Substance: ARIPIPRAZOLE
     Dosage: 7 MG/DAY 4
     Route: 065
  4. ALPRAZOLAM [Suspect]
     Active Substance: ALPRAZOLAM
     Indication: Panic disorder
     Dosage: 0.25 MILLIGRAM, DAILY
     Route: 065
  5. DESVENLAFAXINE [Suspect]
     Active Substance: DESVENLAFAXINE
     Indication: Panic disorder
     Dosage: 100 MILLIGRAM, DAILY
     Route: 065
  6. PROPRANOLOL [Suspect]
     Active Substance: PROPRANOLOL HYDROCHLORIDE
     Indication: Panic disorder
     Dosage: 10 MILLIGRAM, DAILY
     Route: 065

REACTIONS (4)
  - Polydipsia [Unknown]
  - Therapeutic product effect incomplete [Unknown]
  - Mania [Unknown]
  - Condition aggravated [Unknown]
